FAERS Safety Report 6151256-9 (Version None)
Quarter: 2009Q2

REPORT INFORMATION
  Report Type: 
  Country: None (occurrence: None)
  Receive Date: 20090410
  Receipt Date: 20090331
  Transmission Date: 20091009
  Serious: Yes (Other)
  Sender: FDA-Public Use
  Company Number: US-PFIZER INC-2009193797

PATIENT
  Sex: Female

DRUGS (6)
  1. PROVERA [Suspect]
     Indication: HORMONE REPLACEMENT THERAPY
     Dosage: 2.5 MG, UNK
     Route: 048
     Dates: start: 19920101
  2. PREMARIN [Suspect]
     Indication: HORMONE REPLACEMENT THERAPY
     Dosage: 1.25 MG, UNK
     Route: 065
     Dates: start: 19920101
  3. ESTRONE [Suspect]
     Dosage: 5 MG, UNK
     Route: 051
     Dates: start: 19961118
  4. DELESTROGEN [Suspect]
     Dosage: 10 MG, UNK
     Route: 051
     Dates: start: 19961118
  5. SYNTHROID [Concomitant]
     Indication: HYPOTHYROIDISM
     Dosage: UNK
     Dates: start: 19930625
  6. SERZONE [Concomitant]
     Indication: DEPRESSION
     Dosage: UNK
     Dates: start: 19961118, end: 20000101

REACTIONS (1)
  - BREAST CANCER FEMALE [None]
